FAERS Safety Report 9015982 (Version 4)
Quarter: 2013Q3

REPORT INFORMATION
  Report Type: Report from Study
  Country: US (occurrence: US)
  Receive Date: 20130116
  Receipt Date: 20130709
  Transmission Date: 20140515
  Serious: Yes (Hospitalization)
  Sender: FDA-Public Use
  Company Number: US-US-EMD SERONO, INC.-7187105

PATIENT
  Age: 46 Year
  Sex: Male

DRUGS (2)
  1. REBIF [Suspect]
     Indication: RELAPSING-REMITTING MULTIPLE SCLEROSIS
     Route: 058
     Dates: start: 20100806, end: 20121204
  2. REBIF [Suspect]
     Route: 058
     Dates: start: 20121208

REACTIONS (5)
  - Staphylococcal infection [Recovered/Resolved]
  - Excoriation [Unknown]
  - Sperm concentration decreased [Unknown]
  - Pruritus [Unknown]
  - Rash [Unknown]
